FAERS Safety Report 19785375 (Version 1)
Quarter: 2021Q3

REPORT INFORMATION
  Report Type: Spontaneous
  Country: JP (occurrence: JP)
  Receive Date: 20210903
  Receipt Date: 20210903
  Transmission Date: 20211014
  Serious: Yes (Other)
  Sender: FDA-Public Use
  Company Number: JP-PFIZER INC-202101084298

PATIENT
  Age: 3 Decade
  Sex: Male

DRUGS (1)
  1. CORTRIL [Suspect]
     Active Substance: HYDROCORTISONE
     Dosage: 16 MG, DAILY
     Route: 048

REACTIONS (1)
  - Cataract [Unknown]
